FAERS Safety Report 14578401 (Version 2)
Quarter: 2018Q2

REPORT INFORMATION
  Report Type: Spontaneous
  Country: US (occurrence: US)
  Receive Date: 20180227
  Receipt Date: 20180509
  Transmission Date: 20180711
  Serious: Yes (Other)
  Sender: FDA-Public Use
  Company Number: PHEH2018US007893

PATIENT
  Sex: Female

DRUGS (1)
  1. AFINITOR [Suspect]
     Active Substance: EVEROLIMUS
     Indication: BREAST CANCER FEMALE
     Dosage: 10 MG, QD
     Route: 048
     Dates: start: 20180123

REACTIONS (5)
  - Breast cancer female [Unknown]
  - Malignant neoplasm progression [Unknown]
  - Malaise [Unknown]
  - Cough [Unknown]
  - Neoplasm progression [Unknown]
